FAERS Safety Report 5093295-5 (Version None)
Quarter: 2006Q3

REPORT INFORMATION
  Report Type: 
  Country: None (occurrence: None)
  Receive Date: 20060829
  Receipt Date: 20060829
  Transmission Date: 20061208
  Serious: Yes (Other)
  Sender: FDA-Public Use
  Company Number: None

PATIENT
  Age: 83 Year
  Sex: Male
  Weight: 63.5 kg

DRUGS (7)
  1. TERAZOSIN [Suspect]
  2. SIMVASTATIN [Concomitant]
  3. OMEPRAZOLE [Concomitant]
  4. DOCUSATE NA 50 MG/SENNOSIDES [Concomitant]
  5. TAMSULOSIN HCL [Concomitant]
  6. MESALAMINE [Concomitant]
  7. LORAZEPAM [Concomitant]

REACTIONS (1)
  - HYPOTENSION [None]
